FAERS Safety Report 6930347-6 (Version None)
Quarter: 2010Q3

REPORT INFORMATION
  Report Type: 
  Country: None (occurrence: None)
  Receive Date: 20100818
  Receipt Date: 20100805
  Transmission Date: 20110219
  Serious: Yes (Other)
  Sender: FDA-Public Use
  Company Number: US-ROCHE-720836

PATIENT
  Sex: Female
  Weight: 95.3 kg

DRUGS (6)
  1. BONIVA [Suspect]
     Indication: OSTEOPOROSIS
     Route: 048
     Dates: start: 20100803
  2. CALCIUM [Concomitant]
  3. SPIRIVA [Concomitant]
  4. ADVAIR DISKUS 100/50 [Concomitant]
  5. PROTONIX [Concomitant]
  6. SYNTHROID [Concomitant]

REACTIONS (3)
  - BREAST CANCER [None]
  - DIARRHOEA [None]
  - FLATULENCE [None]
